FAERS Safety Report 9363422 (Version 1)
Quarter: 2013Q2

REPORT INFORMATION
  Report Type: Spontaneous
  Country: GB (occurrence: GB)
  Receive Date: 20130624
  Receipt Date: 20130624
  Transmission Date: 20140414
  Serious: Yes (Other)
  Sender: FDA-Public Use
  Company Number: GB-JNJFOC-20130607890

PATIENT
  Age: 44 Year
  Sex: Male
  Weight: 118 kg

DRUGS (6)
  1. USTEKINUMAB [Suspect]
     Indication: PSORIASIS
     Route: 058
     Dates: start: 20130412, end: 20130412
  2. FYBOGEL [Concomitant]
     Route: 065
  3. HYDROXYZINE [Concomitant]
     Route: 065
  4. KAPAKE [Concomitant]
     Route: 065
  5. NAPROXEN [Concomitant]
     Route: 065
  6. OMEPRAZOLE [Concomitant]
     Route: 065

REACTIONS (4)
  - Erythrodermic psoriasis [Recovering/Resolving]
  - Guttate psoriasis [Unknown]
  - Pruritus [Unknown]
  - Skin burning sensation [Unknown]
